FAERS Safety Report 14801313 (Version 1)
Quarter: 2018Q2

REPORT INFORMATION
  Report Type: Spontaneous
  Country: LV (occurrence: LV)
  Receive Date: 20180424
  Receipt Date: 20180424
  Transmission Date: 20180711
  Serious: Yes (Hospitalization, Other)
  Sender: FDA-Public Use
  Company Number: LV-B.I. PHARMACEUTICALS,INC./RIDGEFIELD-2018-BI-021979

PATIENT
  Age: 72 Year
  Sex: Male
  Weight: 94 kg

DRUGS (4)
  1. ROSUVASTATINUM [Concomitant]
     Active Substance: ROSUVASTATIN
     Indication: PRODUCT USED FOR UNKNOWN INDICATION
     Route: 065
  2. BETALOC [Concomitant]
     Active Substance: METOPROLOL TARTRATE
     Indication: PRODUCT USED FOR UNKNOWN INDICATION
     Route: 065
  3. PRESTARIUM [Concomitant]
     Active Substance: PERINDOPRIL
     Indication: PRODUCT USED FOR UNKNOWN INDICATION
     Route: 065
  4. PRADAXA [Suspect]
     Active Substance: DABIGATRAN ETEXILATE MESYLATE
     Indication: ATRIAL FIBRILLATION
     Route: 048
     Dates: start: 20180404, end: 20180422

REACTIONS (4)
  - Head discomfort [Recovering/Resolving]
  - Hypoaesthesia [Recovering/Resolving]
  - Haemorrhage intracranial [Recovering/Resolving]
  - Speech disorder [Recovered/Resolved]

NARRATIVE: CASE EVENT DATE: 20180421
